FAERS Safety Report 4804756-5 (Version None)
Quarter: 2005Q4

REPORT INFORMATION
  Report Type: 
  Country: None (occurrence: None)
  Receive Date: 20051020
  Receipt Date: 20051012
  Transmission Date: 20060501
  Serious: Yes (Congenital Anomaly)
  Sender: FDA-Public Use
  Company Number: SE-ABBOTT-05P-150-0313537-00

PATIENT
  Sex: Male

DRUGS (2)
  1. ERGENYL TABLETS [Suspect]
     Indication: DRUG EXPOSURE DURING PREGNANCY
  2. CLOPENTHIXOL HYDROCHLORIDE [Suspect]
     Indication: DRUG EXPOSURE DURING PREGNANCY

REACTIONS (8)
  - ATRIAL TACHYCARDIA [None]
  - CONGENITAL EYE DISORDER [None]
  - DEVELOPMENTAL DELAY [None]
  - MUSCULAR WEAKNESS [None]
  - NERVOUS SYSTEM DISORDER [None]
  - REFLEXES ABNORMAL [None]
  - VENTRICULAR SEPTAL DEFECT [None]
  - VISUAL ACUITY REDUCED [None]
